FAERS Safety Report 11421836 (Version 1)
Quarter: 2015Q3

REPORT INFORMATION
  Report Type: Report from Study
  Country: US (occurrence: US)
  Receive Date: 20150827
  Receipt Date: 20150827
  Transmission Date: 20151125
  Serious: No
  Sender: FDA-Public Use
  Company Number: US-UCBSA-2015026712

PATIENT
  Age: 72 Year
  Sex: Female
  Weight: 141 kg

DRUGS (8)
  1. LACOSAMIDE EP [Suspect]
     Active Substance: LACOSAMIDE
     Indication: EPILEPSY
     Dosage: UNK
     Route: 048
     Dates: start: 20131126, end: 20140319
  2. VITAMIN D3 [Concomitant]
     Active Substance: CHOLECALCIFEROL
     Indication: VITAMIN D DEFICIENCY
     Dosage: UNK, ONCE DAILY (QD)
     Dates: start: 20130917
  3. FOLATE [Concomitant]
     Active Substance: FOLATE SODIUM
     Indication: MENOPAUSAL SYMPTOMS
     Dosage: 800MCG TID 2 TABLETS
     Dates: start: 20130829
  4. LISINOPRIL. [Concomitant]
     Active Substance: LISINOPRIL
     Indication: HYPERTENSION
     Dosage: 20 MG, 2X/DAY (BID)
     Dates: start: 20100701
  5. ASPIRIN. [Concomitant]
     Active Substance: ASPIRIN
     Indication: HYPERTENSION
     Dosage: 81 MG, ONCE DAILY (QD)
     Route: 048
     Dates: start: 2004
  6. NORVASC [Concomitant]
     Active Substance: AMLODIPINE BESYLATE
     Dosage: 5 MG, 2X/DAY (BID)
     Dates: start: 20130829
  7. VITAMIN B2 [Concomitant]
     Active Substance: RIBOFLAVIN
     Indication: HEADACHE
     Dosage: 200 MG, 2X/DAY (BID)
     Dates: start: 20130829
  8. NORVASC [Concomitant]
     Active Substance: AMLODIPINE BESYLATE
     Indication: HYPERTENSION
     Dosage: 5 MG, ONCE DAILY (QD)
     Dates: start: 20130813, end: 20130828

REACTIONS (1)
  - Sinus bradycardia [Recovered/Resolved]

NARRATIVE: CASE EVENT DATE: 20140320
